FAERS Safety Report 6116996-6 (Version None)
Quarter: 2009Q1

REPORT INFORMATION
  Report Type: 
  Country: None (occurrence: None)
  Receive Date: 20090314
  Receipt Date: 20090105
  Transmission Date: 20090719
  Serious: No
  Sender: FDA-Public Use
  Company Number: US-ABBOTT-09P-163-0495704-00

PATIENT
  Sex: Female
  Weight: 73.548 kg

DRUGS (8)
  1. HUMIRA [Suspect]
     Indication: RHEUMATOID ARTHRITIS
     Dosage: SYRINGE
     Route: 058
     Dates: start: 20040101, end: 20081201
  2. HUMIRA [Suspect]
     Dosage: PEN
     Route: 058
     Dates: start: 20070101, end: 20081214
  3. COZAAR [Concomitant]
     Indication: HYPERTENSION
     Route: 048
  4. ZOCAR [Concomitant]
     Indication: BLOOD CHOLESTEROL INCREASED
     Route: 048
  5. PREDNISONE [Concomitant]
     Indication: RHEUMATOID ARTHRITIS
     Route: 048
  6. NAPROSYN [Concomitant]
     Indication: RHEUMATOID ARTHRITIS
     Route: 048
  7. COLCHICINE [Concomitant]
     Indication: GOUT
     Route: 048
  8. SYNTHROID [Concomitant]
     Indication: HYPOTHYROIDISM
     Route: 048

REACTIONS (5)
  - ASTHENIA [None]
  - COUGH [None]
  - INFLUENZA [None]
  - RHINORRHOEA [None]
  - SNEEZING [None]
